FAERS Safety Report 6110724-6 (Version None)
Quarter: 2009Q1

REPORT INFORMATION
  Report Type: 
  Country: None (occurrence: None)
  Receive Date: 20090309
  Receipt Date: 20090302
  Transmission Date: 20090719
  Serious: Yes (Other)
  Sender: FDA-Public Use
  Company Number: CHPA2009US05692

PATIENT
  Age: 43 Year
  Sex: Female

DRUGS (1)
  1. NICOTINE [Suspect]
     Indication: SMOKING CESSATION THERAPY
     Dosage: 21 MG, QD, TRANSDERMAL; 14MG, TRANSDERMAL; 7MG, TRANSDERMAL
     Route: 062
     Dates: start: 20070901

REACTIONS (4)
  - ARTHRITIS INFECTIVE [None]
  - FALL [None]
  - KNEE ARTHROPLASTY [None]
  - LIGAMENT RUPTURE [None]
